FAERS Safety Report 14052736 (Version 1)
Quarter: 2017Q4

REPORT INFORMATION
  Report Type: Spontaneous
  Country: US (occurrence: None)
  Receive Date: 20171005
  Receipt Date: 20171005
  Transmission Date: 20180321
  Serious: Yes (Other)
  Sender: FDA-Public Use
  Company Number: None

PATIENT
  Age: 67 Year
  Sex: Female
  Weight: 53.07 kg

DRUGS (8)
  1. BACLOFEN. [Concomitant]
     Active Substance: BACLOFEN
  2. VENLAFAXINE [Concomitant]
     Active Substance: VENLAFAXINE HYDROCHLORIDE
  3. AMPYRA [Concomitant]
     Active Substance: DALFAMPRIDINE
  4. MIRALAX [Concomitant]
     Active Substance: POLYETHYLENE GLYCOL 3350
  5. CERR [Concomitant]
  6. OCREVUS [Suspect]
     Active Substance: OCRELIZUMAB
     Indication: DRUG THERAPY
     Dates: start: 20170620, end: 20170620
  7. OMEPRAZOLE. [Concomitant]
     Active Substance: OMEPRAZOLE
  8. TIZANADINE [Concomitant]
     Active Substance: TIZANIDINE

REACTIONS (4)
  - Muscular weakness [None]
  - Dysstasia [None]
  - Multiple sclerosis relapse [None]
  - Pain in extremity [None]

NARRATIVE: CASE EVENT DATE: 20170626
